FAERS Safety Report 5049505-3 (Version None)
Quarter: 2006Q3

REPORT INFORMATION
  Report Type: 
  Country: None (occurrence: None)
  Receive Date: 20060711
  Receipt Date: 20060711
  Transmission Date: 20061208
  Serious: Yes (Hospitalization)
  Sender: FDA-Public Use
  Company Number: None

PATIENT
  Sex: Female
  Weight: 50.1225 kg

DRUGS (2)
  1. TARCEVA [Suspect]
     Indication: BREAST CANCER
     Dosage: 100MG   PO
     Route: 048
     Dates: start: 20060526
  2. DOCETAXE   -   25MG/M2  -   AVENTIS [Suspect]
     Dosage: 25MG/M2    D1, D8, D15 X 6 CYCLES EVERY 28 D   IV
     Route: 042
     Dates: start: 20060526

REACTIONS (10)
  - ABDOMINAL PAIN [None]
  - ACNE [None]
  - BLOOD PRESSURE SYSTOLIC DECREASED [None]
  - DEHYDRATION [None]
  - FATIGUE [None]
  - HEART RATE INCREASED [None]
  - NAUSEA [None]
  - RASH [None]
  - RESPIRATORY RATE INCREASED [None]
  - VOMITING [None]
